FAERS Safety Report 6062106-3 (Version None)
Quarter: 2009Q1

REPORT INFORMATION
  Report Type: 
  Country: None (occurrence: None)
  Receive Date: 20090203
  Receipt Date: 20080326
  Transmission Date: 20090719
  Serious: No
  Sender: FDA-Public Use
  Company Number: GB-BAYER-200816044GPV

PATIENT

DRUGS (1)
  1. ASPIRIN [Suspect]
     Indication: DRUG USE FOR UNKNOWN INDICATION
     Dosage: TOTAL DAILY DOSE: 75 MG
     Route: 048

REACTIONS (1)
  - CEREBRAL HAEMORRHAGE [None]
